FAERS Safety Report 5136235-2 (Version None)
Quarter: 2006Q4

REPORT INFORMATION
  Report Type: 
  Country: None (occurrence: None)
  Receive Date: 20061027
  Receipt Date: 20061017
  Transmission Date: 20070319
  Serious: Yes (Hospitalization)
  Sender: FDA-Public Use
  Company Number: GB-ROCHE-467970

PATIENT
  Age: 21 Year
  Sex: Female

DRUGS (2)
  1. ISOTRETINOIN [Suspect]
     Indication: ACNE
     Route: 048
  2. ALDARA [Interacting]
     Route: 061
     Dates: start: 20060724, end: 20060812

REACTIONS (2)
  - DRUG INTERACTION [None]
  - LOCAL REACTION [None]
